FAERS Safety Report 7297733-9 (Version None)
Quarter: 2011Q1

REPORT INFORMATION
  Report Type: 
  Country: None (occurrence: None)
  Receive Date: 20110214
  Receipt Date: 20110214
  Transmission Date: 20110831
  Serious: Yes (Other)
  Sender: FDA-Public Use
  Company Number: None

PATIENT
  Age: 51 Year
  Sex: Female
  Weight: 81.6475 kg

DRUGS (1)
  1. DILANTIN [Suspect]
     Indication: EPILEPSY
     Dosage: 2-100MG . TWICE A DAY 4 CAPSULES A DAY PO
     Route: 048
     Dates: start: 20090508, end: 20090727

REACTIONS (3)
  - GINGIVAL DISORDER [None]
  - TOOTH FRACTURE [None]
  - STEVENS-JOHNSON SYNDROME [None]
